FAERS Safety Report 24642746 (Version 1)
Quarter: 2024Q4

REPORT INFORMATION
  Report Type: Spontaneous
  Country: JP (occurrence: JP)
  Receive Date: 20241120
  Receipt Date: 20241120
  Transmission Date: 20250115
  Serious: Yes (Hospitalization, Other)
  Sender: DAIICHI
  Company Number: JP-DSJP-DS-2024-107276-JP

PATIENT
  Age: 78 Year
  Sex: Male

DRUGS (1)
  1. EDOXABAN TOSYLATE [Suspect]
     Active Substance: EDOXABAN TOSYLATE
     Indication: Atrial fibrillation
     Dosage: 60MG/DAY
     Route: 048

REACTIONS (3)
  - Post procedural haemorrhage [Recovering/Resolving]
  - Acute kidney injury [Not Recovered/Not Resolved]
  - Aortic dissection [Unknown]
